FAERS Safety Report 11817835 (Version 1)
Quarter: 2015Q4

REPORT INFORMATION
  Report Type: Spontaneous
  Country: US (occurrence: US)
  Receive Date: 20151210
  Receipt Date: 20151210
  Transmission Date: 20160305
  Serious: No
  Sender: FDA-Public Use
  Company Number: US-JNJFOC-20150808962

PATIENT
  Sex: Male

DRUGS (8)
  1. RISPERDAL [Suspect]
     Active Substance: RISPERIDONE
     Indication: TOURETTE^S DISORDER
     Dosage: VARYING DOSE OF 0.25, 2 MG
     Route: 048
     Dates: end: 2011
  2. RISPERDAL [Suspect]
     Active Substance: RISPERIDONE
     Indication: IRRITABILITY
     Dosage: VARYING DOSE OF 0.25, 2 MG
     Route: 048
     Dates: end: 2011
  3. RISPERDAL [Suspect]
     Active Substance: RISPERIDONE
     Indication: DEPRESSION
     Dosage: VARYING DOSE OF 0.25, 2 MG
     Route: 048
     Dates: end: 2011
  4. RISPERDAL [Suspect]
     Active Substance: RISPERIDONE
     Indication: ANXIETY
     Dosage: VARYING DOSE OF 0.25, 2 MG
     Route: 048
     Dates: end: 2011
  5. RISPERDAL [Suspect]
     Active Substance: RISPERIDONE
     Indication: ANXIETY
     Dosage: VARYING DOSE OF 0.25, 2 MG
     Route: 048
     Dates: start: 2005, end: 2006
  6. RISPERDAL [Suspect]
     Active Substance: RISPERIDONE
     Indication: TOURETTE^S DISORDER
     Dosage: VARYING DOSE OF 0.25, 2 MG
     Route: 048
     Dates: start: 2005, end: 2006
  7. RISPERDAL [Suspect]
     Active Substance: RISPERIDONE
     Indication: IRRITABILITY
     Dosage: VARYING DOSE OF 0.25, 2 MG
     Route: 048
     Dates: start: 2005, end: 2006
  8. RISPERDAL [Suspect]
     Active Substance: RISPERIDONE
     Indication: DEPRESSION
     Dosage: VARYING DOSE OF 0.25, 2 MG
     Route: 048
     Dates: start: 2005, end: 2006

REACTIONS (4)
  - Gynaecomastia [Unknown]
  - Product use issue [Unknown]
  - Abnormal weight gain [Unknown]
  - Off label use [Unknown]

NARRATIVE: CASE EVENT DATE: 2005
